FAERS Safety Report 17063949 (Version 1)
Quarter: 2019Q4

REPORT INFORMATION
  Report Type: Spontaneous
  Country: US (occurrence: US)
  Receive Date: 20191122
  Receipt Date: 20191122
  Transmission Date: 20200122
  Serious: Yes (Hospitalization)
  Sender: FDA-Public Use
  Company Number: US-SA-2019SA321927

PATIENT
  Age: 16 Year
  Sex: Male

DRUGS (2)
  1. FABRAZYME [Suspect]
     Active Substance: AGALSIDASE BETA
     Indication: FABRY^S DISEASE
     Dosage: 35 MG, QOW
     Route: 041
     Dates: start: 20160830
  2. FABRAZYME [Suspect]
     Active Substance: AGALSIDASE BETA
     Dosage: 15 MG, QOW
     Route: 041
     Dates: start: 20160831

REACTIONS (2)
  - Back pain [Unknown]
  - Gait disturbance [Unknown]
